FAERS Safety Report 20711389 (Version 1)
Quarter: 2022Q2

REPORT INFORMATION
  Report Type: Spontaneous
  Country: ES (occurrence: ES)
  Receive Date: 20220414
  Receipt Date: 20220414
  Transmission Date: 20220720
  Serious: Yes (Hospitalization)
  Sender: FDA-Public Use
  Company Number: None

PATIENT
  Age: 75 Year
  Sex: Female

DRUGS (12)
  1. METFORMIN HYDROCHLORIDE [Suspect]
     Active Substance: METFORMIN HYDROCHLORIDE
     Indication: Diabetes mellitus
     Dosage: 1000 MG, (C/12 H )
     Route: 048
     Dates: start: 20201016, end: 20201028
  2. SITAGLIPTIN [Suspect]
     Active Substance: SITAGLIPTIN
     Indication: Diabetes mellitus
     Dosage: 100 MG, (C/24 H)
     Route: 048
     Dates: start: 20201016, end: 20201028
  3. MYCOSTATIN [Concomitant]
     Active Substance: NYSTATIN
     Indication: Oral candidiasis
     Dosage: 500000 UL ( C/12 H), (STRENGTH: 100.000 UI/ML, 1 FRASCO DE 60 ML)
     Route: 048
     Dates: start: 20130109
  4. BENSERAZIDE HYDROCHLORIDE\LEVODOPA [Concomitant]
     Active Substance: BENSERAZIDE HYDROCHLORIDE\LEVODOPA
     Indication: Parkinson^s disease
     Dosage: (0.5 COMP A-DECOCE) 100 COMPRIMIDOS
     Route: 048
     Dates: start: 20200128
  5. ACETAMINOPHEN [Concomitant]
     Active Substance: ACETAMINOPHEN
     Indication: Osteoarthritis
     Dosage: 1.0 G (40 COMPRIMIDOS) (DECOCE)
     Route: 048
     Dates: start: 20180423
  6. PRAMIPEXOLE [Concomitant]
     Active Substance: PRAMIPEXOLE
     Indication: Parkinson^s disease
     Dosage: 0.7 MG, (CE)COMPRIMIDOS, 100 COMPRIMIDOS
     Route: 048
     Dates: start: 20101015
  7. PRISDAL [Concomitant]
     Indication: Affective disorder
     Dosage: 40 MG, (A-DE) COMPRIMIDOS RECUBIERTOS CON PELICULA , 28 COMPRIMIDOS
     Route: 048
     Dates: start: 20110126
  8. AZITHROMYCIN [Concomitant]
     Active Substance: AZITHROMYCIN
     Indication: Asthma
     Dosage: 500 MG, (LU,MI,VI)COMPRIMIDOS RECUBIERTOS CON PELICULA EFG, 3 COMPRIMIDOS
     Route: 048
     Dates: start: 20201016
  9. OMEPRAZOLE [Concomitant]
     Active Substance: OMEPRAZOLE
     Indication: Diabetes mellitus
     Dosage: 20 MG (A-DE)CAPSULAS DURAS GASTRORRESISTENTES EFG , 28 C?PSULAS
     Route: 048
     Dates: start: 20080610
  10. NOLOTIL [Concomitant]
     Indication: Spinal osteoarthritis
     Dosage: 575 MG, (C/8 HORAS)
     Route: 048
     Dates: start: 20190703
  11. COLISTIMETATO DE SODIO [Concomitant]
     Indication: Pseudomonas infection
     Dosage: 1.0 MUI C/12 H ACCORD 1 MILLON DE UI POLVO PARA SOLUCION INYECTABLE Y PARA PERFUSION EFG, 10 VIALES
     Route: 050
     Dates: start: 20171025
  12. ATROVENT [Concomitant]
     Active Substance: IPRATROPIUM BROMIDE
     Indication: Asthma
     Dosage: 312.5 MCG C/8 HORAS SOLUCION PARA INHALACION POR NEBULIZADOR , 20 AMPOLLAS DE 2 ML
     Route: 050
     Dates: start: 20190424

REACTIONS (1)
  - Abdominal discomfort [Recovered/Resolved]

NARRATIVE: CASE EVENT DATE: 20201028
